FAERS Safety Report 19418845 (Version 1)
Quarter: 2021Q2

REPORT INFORMATION
  Report Type: Spontaneous
  Country: CA (occurrence: CA)
  Receive Date: 20210615
  Receipt Date: 20210615
  Transmission Date: 20210717
  Serious: Yes (Hospitalization)
  Sender: FDA-Public Use
  Company Number: CA-ACCORD-228308

PATIENT
  Age: 52 Year
  Sex: Male
  Weight: 60 kg

DRUGS (10)
  1. CARBOPLATIN. [Suspect]
     Active Substance: CARBOPLATIN
     Indication: LUNG NEOPLASM MALIGNANT
     Dosage: SOLUTION INTRAVENOUS
  2. PACLITAXEL/PACLITAXEL LIPOSOME [Suspect]
     Active Substance: PACLITAXEL
     Indication: LUNG NEOPLASM MALIGNANT
     Dosage: LIQUID INTRAVENOUS
  3. DEXAMETHASONE. [Concomitant]
     Active Substance: DEXAMETHASONE
  4. RANITIDINE. [Concomitant]
     Active Substance: RANITIDINE
  5. DIPHENHYDRAMINE. [Concomitant]
     Active Substance: DIPHENHYDRAMINE
  6. PAMIDRONATE [Concomitant]
     Active Substance: PAMIDRONATE DISODIUM
  7. KEYTRUDA [Suspect]
     Active Substance: PEMBROLIZUMAB
     Indication: LUNG NEOPLASM MALIGNANT
  8. PROCHLORPERAZINE. [Concomitant]
     Active Substance: PROCHLORPERAZINE
  9. ONDANSETRON [Concomitant]
     Active Substance: ONDANSETRON
  10. LORAZEPAM. [Concomitant]
     Active Substance: LORAZEPAM

REACTIONS (5)
  - Lung squamous cell carcinoma metastatic [Not Recovered/Not Resolved]
  - Abscess neck [Not Recovered/Not Resolved]
  - Febrile neutropenia [Not Recovered/Not Resolved]
  - Septic shock [Not Recovered/Not Resolved]
  - Oropharyngeal squamous cell carcinoma [Not Recovered/Not Resolved]
